FAERS Safety Report 25952578 (Version 1)
Quarter: 2025Q4

REPORT INFORMATION
  Report Type: Spontaneous
  Country: US (occurrence: US)
  Receive Date: 20251023
  Receipt Date: 20251023
  Transmission Date: 20260118
  Serious: Yes (Life-Threatening, Hospitalization, Other)
  Sender: PFIZER
  Company Number: US-PFIZER INC-202500144849

PATIENT
  Age: 61 Year
  Sex: Female

DRUGS (1)
  1. IBRANCE [Suspect]
     Active Substance: PALBOCICLIB
     Dosage: 125 MG, ONE TABLET BY MOUTH IN THE MORNING ON DAYS 1-21 OF 28 DAY CYCLE
     Route: 048

REACTIONS (2)
  - Seizure [Unknown]
  - Near death experience [Unknown]
